FAERS Safety Report 7362338-8 (Version None)
Quarter: 2011Q1

REPORT INFORMATION
  Report Type: 
  Country: None (occurrence: None)
  Receive Date: 20110318
  Receipt Date: 20110309
  Transmission Date: 20110831
  Serious: Yes (Hospitalization)
  Sender: FDA-Public Use
  Company Number: SZ-ASTRAZENECA-2011SE13269

PATIENT
  Age: 89 Year
  Sex: Male

DRUGS (3)
  1. ASPIRIN [Concomitant]
     Route: 048
  2. TENORMIN [Suspect]
     Route: 048
     Dates: end: 20110109
  3. ENALAPRIL MALEATE [Concomitant]
     Route: 048

REACTIONS (3)
  - MALAISE [None]
  - SINUS BRADYCARDIA [None]
  - ASTHENIA [None]
